FAERS Safety Report 9523017 (Version 2)
Quarter: 2014Q1

REPORT INFORMATION
  Report Type: Spontaneous
  Country: DK (occurrence: CA)
  Receive Date: 20130913
  Receipt Date: 20140123
  Transmission Date: 20141002
  Serious: Yes (Other)
  Sender: FDA-Public Use
  Company Number: CA-FRI-1000048775

PATIENT
  Age: 19 Year
  Sex: Male

DRUGS (1)
  1. ESCITALOPRAM [Suspect]
     Indication: DEPRESSION
     Dosage: 10 MG
     Route: 048
     Dates: start: 201302

REACTIONS (4)
  - Abnormal behaviour [Unknown]
  - Unresponsive to stimuli [Unknown]
  - Nausea [Unknown]
  - Dizziness [Unknown]
